FAERS Safety Report 4986165-1 (Version None)
Quarter: 2006Q2

REPORT INFORMATION
  Report Type: 
  Country: None (occurrence: None)
  Receive Date: 20060428
  Receipt Date: 20051228
  Transmission Date: 20061013
  Serious: Yes (Hospitalization)
  Sender: FDA-Public Use
  Company Number: US-MERCK-0512USA04052

PATIENT
  Age: 60 Year
  Sex: Male
  Weight: 91 kg

DRUGS (21)
  1. PREVACID [Concomitant]
     Route: 065
  2. ZOCOR [Concomitant]
     Route: 065
  3. LOPRESSOR [Concomitant]
     Route: 065
  4. BEXTRA [Concomitant]
     Route: 065
  5. FLOMAX (MORNIFLUMATE) [Concomitant]
     Route: 065
  6. ZITHROMAX [Concomitant]
     Route: 065
  7. HYCODAN [Concomitant]
     Indication: COUGH
     Route: 065
  8. FLUOXETINE [Concomitant]
     Route: 065
  9. PRILOSEC [Concomitant]
     Route: 065
  10. BIAXIN [Concomitant]
     Route: 065
  11. DURATUSS [Concomitant]
     Route: 065
  12. DARVOCET [Concomitant]
     Route: 065
  13. AMOXICILLIN [Concomitant]
     Route: 065
  14. HYDROMET (HYDROCHLOROTHIAZIDE (+) METHYLDOPA) [Concomitant]
     Route: 065
  15. GUAIFENEX [Concomitant]
     Route: 065
  16. TRAMADOL HYDROCHLORIDE [Concomitant]
     Route: 065
  17. [THERAPY UNSPECIFIED] [Concomitant]
     Route: 065
  18. ZETIA [Concomitant]
     Route: 065
  19. ASPIRIN [Concomitant]
     Route: 065
  20. NITROSTAT [Concomitant]
     Route: 065
  21. VIOXX [Suspect]
     Indication: OSTEOARTHRITIS
     Route: 048
     Dates: start: 20010520, end: 20030723

REACTIONS (7)
  - ACUTE MYOCARDIAL INFARCTION [None]
  - ARTHROPATHY [None]
  - BRONCHITIS [None]
  - CORONARY ARTERY DISEASE [None]
  - DEPRESSION [None]
  - LUMBAR SPINAL STENOSIS [None]
  - PLEURITIC PAIN [None]
